FAERS Safety Report 23247652 (Version 1)
Quarter: 2023Q4

REPORT INFORMATION
  Report Type: Spontaneous
  Country: IT (occurrence: IT)
  Receive Date: 20231130
  Receipt Date: 20231130
  Transmission Date: 20240110
  Serious: Yes (Other)
  Sender: FDA-Public Use
  Company Number: None

PATIENT
  Age: 53 Year
  Sex: Female

DRUGS (2)
  1. DEPO-MEDROL [Suspect]
     Active Substance: METHYLPREDNISOLONE ACETATE
     Indication: Arthralgia
     Dosage: 40 MG/ML
     Route: 014
     Dates: start: 20220627, end: 20220627
  2. KENACORT [Suspect]
     Active Substance: TRIAMCINOLONE
     Indication: Arthralgia
     Dosage: 40 MG/ML
     Route: 014
     Dates: start: 20220627, end: 20220627

REACTIONS (1)
  - Rash pruritic [Recovered/Resolved]

NARRATIVE: CASE EVENT DATE: 20220629
